FAERS Safety Report 19802217 (Version 2)
Quarter: 2021Q3

REPORT INFORMATION
  Report Type: Other
  Country: SK (occurrence: SK)
  Receive Date: 20210908
  Receipt Date: 20210915
  Transmission Date: 20211014
  Serious: Yes (Death, Hospitalization)
  Sender: FDA-Public Use
  Company Number: SK-ROCHE-2903485

PATIENT

DRUGS (7)
  1. RITUXIMAB. [Suspect]
     Active Substance: RITUXIMAB
     Indication: ACQUIRED HAEMOPHILIA
     Dosage: 600 MG (375MG/M2) (ADMINISTERED ON DAY 20 OF HOSPITALISATION)
     Route: 041
  2. DEXAMETHASONE. [Concomitant]
     Active Substance: DEXAMETHASONE
     Indication: ACQUIRED HAEMOPHILIA
  3. CYCLOPHOSPHAMIDE. [Concomitant]
     Active Substance: CYCLOPHOSPHAMIDE
     Indication: ACQUIRED HAEMOPHILIA
  4. PREDNISONE. [Concomitant]
     Active Substance: PREDNISONE
     Indication: ACQUIRED HAEMOPHILIA
  5. FLUCONAZOLE. [Concomitant]
     Active Substance: FLUCONAZOLE
     Indication: ACQUIRED HAEMOPHILIA
  6. ETHAMSYLATE [Concomitant]
     Active Substance: ETHAMSYLATE
     Indication: ACQUIRED HAEMOPHILIA
  7. PARA?AMINOBENZOIC ACID [Concomitant]
     Active Substance: AMINOBENZOIC ACID
     Indication: ACQUIRED HAEMOPHILIA

REACTIONS (5)
  - Disease recurrence [Unknown]
  - Haemorrhage [Unknown]
  - Off label use [Unknown]
  - Cystitis [Unknown]
  - Cardiopulmonary failure [Fatal]
